FAERS Safety Report 22400049 (Version 13)
Quarter: 2023Q4

REPORT INFORMATION
  Report Type: Report from Study
  Country: BR (occurrence: BR)
  Receive Date: 20230602
  Receipt Date: 20231110
  Transmission Date: 20240110
  Serious: Yes (Life-Threatening, Hospitalization)
  Sender: FDA-Public Use
  Company Number: BR-AMGEN-BRACT2023093975

PATIENT
  Age: 14 Year
  Sex: Male

DRUGS (37)
  1. CARFILZOMIB [Suspect]
     Active Substance: CARFILZOMIB
     Indication: Acute lymphocytic leukaemia
     Dosage: 82.3 MILLIGRAM
     Route: 042
     Dates: start: 20230411
  2. CYTARABINE [Suspect]
     Active Substance: CYTARABINE
     Indication: Acute lymphocytic leukaemia
     Dosage: 30-110 MILLIGRAM
     Route: 058
     Dates: start: 20230502
  3. HYDROCORTISONE [Suspect]
     Active Substance: HYDROCORTISONE
     Indication: Acute lymphocytic leukaemia
     Dosage: 2 MILLIGRAM
     Route: 029
     Dates: start: 20230502
  4. METHOTREXATE [Suspect]
     Active Substance: METHOTREXATE
     Indication: Acute lymphocytic leukaemia
     Dosage: 15 MILLIGRAM
     Route: 065
     Dates: start: 20230502
  5. CORTISONE [Suspect]
     Active Substance: CORTISONE
     Indication: Acute lymphocytic leukaemia
     Dosage: 2 MILLIGRAM
     Route: 029
     Dates: start: 20230502
  6. CYCLOPHOSPHAMIDE [Suspect]
     Active Substance: CYCLOPHOSPHAMIDE
     Indication: Acute lymphocytic leukaemia
     Dosage: 1.47 MILLIGRAM
     Route: 065
     Dates: start: 20230530
  7. MERCAPTOPURINE [Suspect]
     Active Substance: MERCAPTOPURINE
     Indication: Acute lymphocytic leukaemia
     Dosage: 88 MILLIGRAM
     Route: 065
     Dates: start: 20230530
  8. FILGRASTIM [Concomitant]
     Active Substance: FILGRASTIM
     Dosage: 300 MICROGRAM
     Route: 042
     Dates: start: 20230505, end: 20230614
  9. AMLODIPINE [Concomitant]
     Active Substance: AMLODIPINE BESYLATE
     Dosage: 5 MILLIGRAM
     Route: 048
     Dates: start: 20200330, end: 202307
  10. BACTRIM [Concomitant]
     Active Substance: SULFAMETHOXAZOLE\TRIMETHOPRIM
     Dosage: 1 UNK
     Route: 048
     Dates: start: 20200331, end: 20230817
  11. ATENOLOL [Concomitant]
     Active Substance: ATENOLOL
     Dosage: 50 MILLIGRAM
     Route: 048
     Dates: start: 20221107, end: 202307
  12. ACYCLOVIR [Concomitant]
     Active Substance: ACYCLOVIR
     Dosage: 600 MILLIGRAM
     Route: 048
     Dates: start: 20230330, end: 20230817
  13. NPH INSULIN [Concomitant]
     Active Substance: INSULIN BEEF
     Dosage: 14 INTERNATIONAL UNIT
     Route: 058
     Dates: start: 20230425, end: 20230503
  14. INSULIN NOS [Concomitant]
     Active Substance: INSULIN NOS
     Dosage: 4-5 INTERNATIONAL UNIT
     Route: 042
     Dates: start: 20230425, end: 20230531
  15. DIPYRONE [Concomitant]
     Active Substance: DIPYRONE
     Dosage: 1000 MILLIGRAM/ 2 MILLILITER
     Route: 042
     Dates: start: 20230427, end: 20230611
  16. AMINOPHYLLINE [Concomitant]
     Active Substance: AMINOPHYLLINE
     Dosage: 5.2 MILLIGRAM
     Route: 042
     Dates: start: 20230428, end: 20230501
  17. PIPERACILLIN AND TAZOBACTAM [Concomitant]
     Active Substance: PIPERACILLIN SODIUM\TAZOBACTAM SODIUM
     Dosage: 3.93-4.2 MILLIGRAM
     Route: 042
     Dates: start: 20230429, end: 20230614
  18. LEVETIRACETAM [Concomitant]
     Active Substance: LEVETIRACETAM
     Dosage: 2.5 MILLILITER
     Route: 048
     Dates: start: 20230430
  19. VINCRISTINE [Concomitant]
     Active Substance: VINCRISTINE
     Dosage: 2 MILLIGRAM
     Dates: start: 20230503, end: 20230503
  20. ALBUMIN HUMAN [Concomitant]
     Active Substance: ALBUMIN HUMAN
     Dosage: 50 MILLILITER
     Route: 042
     Dates: start: 20230504, end: 20230506
  21. FUROSEMIDE [Concomitant]
     Active Substance: FUROSEMIDE
     Dosage: 2 MILLIGRAM
     Route: 042
     Dates: start: 20230504, end: 20230531
  22. ACETAMINOPHEN [Concomitant]
     Active Substance: ACETAMINOPHEN
     Dosage: 500 MILLIGRAM, 35-45 GTT DROPS
     Route: 048
     Dates: start: 20230504, end: 20230511
  23. MEROPENEM [Concomitant]
     Active Substance: MEROPENEM
     Dosage: 2 MILLIGRAM
     Route: 042
     Dates: start: 20230505, end: 20230511
  24. VANCOMYCIN [Concomitant]
     Active Substance: VANCOMYCIN
     Dosage: 762 MILLIGRAM
     Route: 042
     Dates: start: 20230505, end: 20230511
  25. SERTRALINE [Concomitant]
     Active Substance: SERTRALINE HYDROCHLORIDE
     Dosage: 1 UNK
     Route: 048
     Dates: start: 20230507, end: 202306
  26. MICAFUNGIN [Concomitant]
     Active Substance: MICAFUNGIN SODIUM
     Dosage: 203 MILLIGRAM
     Route: 042
     Dates: start: 20230508, end: 20230612
  27. DEXAMETHASONE [Concomitant]
     Active Substance: DEXAMETHASONE
     Dosage: 2-4.4 MILLIGRAM
     Dates: start: 20230501, end: 20230531
  28. ENALAPRIL [Concomitant]
     Active Substance: ENALAPRIL
     Dosage: 5 MILLIGRAM
     Route: 048
     Dates: start: 20230429, end: 202307
  29. PHENYTOIN [Concomitant]
     Active Substance: PHENYTOIN
     Dosage: UNK
     Route: 042
     Dates: start: 20230430, end: 20230502
  30. DIPHENHYDRAMINE [Concomitant]
     Active Substance: DIPHENHYDRAMINE
     Dosage: 1-0.9 MILLILITER
     Route: 042
     Dates: start: 20230501, end: 20230614
  31. ONDANSETRON [Concomitant]
     Active Substance: ONDANSETRON
     Dosage: 7-7.5 MILLIGRAM
     Route: 042
     Dates: start: 20230503, end: 20230613
  32. SODIUM CHLORIDE [Concomitant]
     Active Substance: SODIUM CHLORIDE
     Dosage: 1-1000 MILLILITER
     Route: 042
     Dates: start: 20230530, end: 20230601
  33. MESNA [Concomitant]
     Active Substance: MESNA
     Indication: Acute lymphocytic leukaemia
     Dosage: 400 MILLIGRAM
     Route: 042
     Dates: start: 20230530, end: 20230530
  34. KETAMINE [Concomitant]
     Active Substance: KETAMINE
     Dosage: 1 MILLILITER
     Route: 042
     Dates: start: 20230405, end: 20230530
  35. MIDAZOLAM [Concomitant]
     Active Substance: MIDAZOLAM
     Dosage: 10 MILLILITER
     Route: 042
     Dates: start: 20230405, end: 20230530
  36. LEVOFLOXACIN [Concomitant]
     Active Substance: LEVOFLOXACIN
     Dosage: 2 UNK
     Route: 048
     Dates: start: 20230426, end: 202306
  37. FOLIC ACID [Concomitant]
     Active Substance: FOLIC ACID
     Dosage: 2.5 UNK
     Route: 048
     Dates: start: 20230505

REACTIONS (1)
  - Tumour lysis syndrome [Recovered/Resolved]

NARRATIVE: CASE EVENT DATE: 20230531
